FAERS Safety Report 6340159-2 (Version None)
Quarter: 2009Q3

REPORT INFORMATION
  Report Type: 
  Country: None (occurrence: None)
  Receive Date: 20090902
  Receipt Date: 20090827
  Transmission Date: 20100115
  Serious: Yes (Hospitalization)
  Sender: FDA-Public Use
  Company Number: TPA2009A02244

PATIENT
  Age: 43 Year
  Sex: Female

DRUGS (11)
  1. KAPIDEX [Suspect]
     Indication: DRUG USE FOR UNKNOWN INDICATION
     Dosage: 60 MG, 1 IN 1 D, PER ORAL
     Route: 048
     Dates: start: 20090728, end: 20090730
  2. RANITIDINE [Concomitant]
  3. FLONASE (FLUTCASONE PROPIONATE) [Concomitant]
  4. MECLIZINE [Concomitant]
  5. GARLIC (ALLIUM SATIVUM) [Concomitant]
  6. LORATADINE [Concomitant]
  7. AMITRIPTYLINE HYDROCHLORIDE [Concomitant]
  8. CITALOPRAM HYDROBROMIDE [Concomitant]
  9. VITAMIN D [Concomitant]
  10. LEVOTHYROXINE SODIUM [Concomitant]
  11. CELEXA [Concomitant]

REACTIONS (3)
  - ABDOMINAL PAIN [None]
  - INSOMNIA [None]
  - MENTAL STATUS CHANGES [None]
